FAERS Safety Report 13825274 (Version 1)
Quarter: 2017Q3

REPORT INFORMATION
  Report Type: Spontaneous
  Country: US (occurrence: US)
  Receive Date: 20170802
  Receipt Date: 20170802
  Transmission Date: 20171127
  Serious: Yes (Death, Hospitalization, Other)
  Sender: FDA-Public Use
  Company Number: None

PATIENT
  Sex: Female

DRUGS (3)
  1. DURAGESIC [Suspect]
     Active Substance: FENTANYL
  2. PROPOFOL ANESTHETIC [Suspect]
     Active Substance: PROPOFOL
     Dates: start: 20161117, end: 20161206
  3. FENTANYL IV [Suspect]
     Active Substance: FENTANYL
     Dates: start: 20161117, end: 20161206

REACTIONS (20)
  - Swollen tongue [None]
  - Vomiting [None]
  - Renal disorder [None]
  - Diarrhoea [None]
  - Lip swelling [None]
  - Heart rate abnormal [None]
  - Peripheral swelling [None]
  - Sepsis [None]
  - Muscle disorder [None]
  - Confusional state [None]
  - Tracheostomy [None]
  - Nausea [None]
  - Amnesia [None]
  - Coordination abnormal [None]
  - Mouth swelling [None]
  - Dialysis [None]
  - Swelling face [None]
  - Pyrexia [None]
  - Escherichia infection [None]
  - Renal failure [None]

NARRATIVE: CASE EVENT DATE: 20161117
